FAERS Safety Report 8346805 (Version 4)
Quarter: 2013Q2

REPORT INFORMATION
  Report Type: Report from Study
  Country: US (occurrence: US)
  Receive Date: 20120120
  Receipt Date: 20130603
  Transmission Date: 20140414
  Serious: Yes (Death, Hospitalization, Other)
  Sender: FDA-Public Use
  Company Number: US-BRISTOL-MYERS SQUIBB COMPANY-15218894

PATIENT
  Age: 69 Year
  Sex: Male

DRUGS (14)
  1. IPILIMUMAB [Suspect]
     Indication: MALIGNANT MELANOMA
     Dosage: 253.5MG
     Route: 042
     Dates: start: 20100701, end: 20100722
  2. AMLODIPINE [Concomitant]
  3. BENAZEPRIL HCL [Concomitant]
  4. NEXIUM [Concomitant]
  5. MEGACE [Concomitant]
  6. KEPPRA [Concomitant]
     Dates: start: 20100412
  7. REMERON [Concomitant]
     Dates: start: 20100722
  8. PROVIGIL [Concomitant]
     Dates: start: 20100722
  9. FLEET ENEMA [Concomitant]
  10. DECADRON [Concomitant]
     Dates: start: 20100807
  11. SEROQUEL [Concomitant]
     Dates: start: 20100807
  12. ASACOL [Concomitant]
     Dates: start: 20100807
  13. PROTONIX [Concomitant]
     Dates: start: 20100807
  14. VANCOMYCIN [Concomitant]

REACTIONS (9)
  - Malignant neoplasm progression [Fatal]
  - Infection [Fatal]
  - Colitis [Recovered/Resolved with Sequelae]
  - Diarrhoea [Recovered/Resolved]
  - Mental status changes [Recovered/Resolved with Sequelae]
  - Sepsis [Recovered/Resolved]
  - Dehydration [Recovered/Resolved]
  - Leukocytosis [Recovered/Resolved]
  - Bacteraemia [Recovered/Resolved]
